FAERS Safety Report 10169675 (Version 1)
Quarter: 2014Q2

REPORT INFORMATION
  Report Type: Spontaneous
  Country: AU (occurrence: AU)
  Receive Date: 20140513
  Receipt Date: 20140513
  Transmission Date: 20141212
  Serious: Yes (Other)
  Sender: FDA-Public Use
  Company Number: AU-PFIZER INC-2014125402

PATIENT
  Age: 83 Year
  Sex: Male

DRUGS (6)
  1. LYRICA [Suspect]
     Dosage: 75 MG, 3X/DAY
  2. LYRICA [Suspect]
     Dosage: 75 MG, 2X/DAY
  3. LYRICA [Suspect]
     Dosage: 25 MG, 2X/DAY
  4. LYRICA [Suspect]
     Dosage: 25 MG, 3X/DAY
  5. LYRICA [Suspect]
     Dosage: 25 MG, 2X/DAY
  6. PARACETAMOL OSTEO [Concomitant]
     Dosage: 650 MG, UNK

REACTIONS (9)
  - Paralysis [Unknown]
  - Dizziness [Unknown]
  - Somnolence [Unknown]
  - Social avoidant behaviour [Unknown]
  - Nasopharyngitis [Unknown]
  - Coordination abnormal [Unknown]
  - Fatigue [Recovering/Resolving]
  - Asthenia [Recovering/Resolving]
  - Intentional product misuse [Unknown]
